FAERS Safety Report 8194163 (Version 14)
Quarter: 2012Q4

REPORT INFORMATION
  Report Type: Report from Study
  Country: ES (occurrence: ES)
  Receive Date: 20111021
  Receipt Date: 20121023
  Transmission Date: 20130627
  Serious: Yes (Death, Life-Threatening)
  Sender: FDA-Public Use
  Company Number: ES-ROCHE-1005432

PATIENT
  Age: 77 Year
  Sex: Female
  Weight: 60 kg

DRUGS (15)
  1. LEDERFOLIN [Concomitant]
     Indication: RHEUMATOID ARTHRITIS
     Route: 048
     Dates: start: 20090223
  2. METHOTREXATE [Concomitant]
     Indication: RHEUMATOID ARTHRITIS
     Route: 048
     Dates: start: 20090223
  3. CELECOXIB [Concomitant]
     Indication: RHEUMATOID ARTHRITIS
     Route: 048
     Dates: start: 20100304
  4. PREDNISONE [Concomitant]
     Indication: RHEUMATOID ARTHRITIS
     Route: 048
     Dates: start: 20080630
  5. IBANDRONIC ACID [Concomitant]
     Indication: OSTEOPOROSIS
     Route: 048
     Dates: start: 20080630
  6. CALCIFEROL [Concomitant]
     Indication: OSTEOPOROSIS
     Route: 048
     Dates: start: 20080630
  7. DOXAZOSINA [Concomitant]
     Indication: HYPERTENSION
     Route: 048
     Dates: start: 20100118
  8. CANDESARTAN [Concomitant]
     Indication: HYPERTENSION
     Route: 048
     Dates: start: 20090914
  9. CALCIUM NOS/CHOLECALCIFEROL [Concomitant]
     Indication: CALCIUM DEFICIENCY
     Route: 048
     Dates: start: 20090914
  10. METAMIZOL [Concomitant]
     Indication: PAIN
     Route: 048
     Dates: start: 20090914
  11. METAMIZOL [Concomitant]
     Route: 048
     Dates: start: 20111003, end: 20111011
  12. PARACETAMOL [Concomitant]
     Indication: PAIN
     Route: 048
     Dates: start: 20090914
  13. TRAMADOL [Concomitant]
     Route: 048
     Dates: start: 20111003, end: 20111011
  14. TOCILIZUMAB [Suspect]
     Indication: RHEUMATOID ARTHRITIS
     Dosage: last dose prior to sae-05-oct-2011
     Route: 058
     Dates: start: 20110426
  15. PLACEBO [Suspect]
     Indication: RHEUMATOID ARTHRITIS
     Dosage: last dose prior to sae: 14 sep 2011.
     Route: 042
     Dates: start: 20110426

REACTIONS (2)
  - Shock [Fatal]
  - Pelvic pain [Not Recovered/Not Resolved]
